FAERS Safety Report 23542968 (Version 1)
Quarter: 2024Q1

REPORT INFORMATION
  Report Type: Spontaneous
  Country: US (occurrence: US)
  Receive Date: 20240220
  Receipt Date: 20240220
  Transmission Date: 20240410
  Serious: No
  Sender: FDA-Public Use
  Company Number: US-ELI_LILLY_AND_COMPANY-US202402010340

PATIENT
  Age: 73 Year
  Sex: Female

DRUGS (3)
  1. JAYPIRCA [Suspect]
     Active Substance: PIRTOBRUTINIB
     Indication: Chronic lymphocytic leukaemia
     Dosage: 50 MG, UNKNOWN
     Route: 048
     Dates: start: 202309
  2. JAYPIRCA [Suspect]
     Active Substance: PIRTOBRUTINIB
     Dosage: 100 MG, DAILY
     Route: 048
     Dates: start: 20231101
  3. LASIX [Suspect]
     Active Substance: FUROSEMIDE
     Indication: Fluid retention
     Dosage: UNK UNK, UNKNOWN
     Route: 065

REACTIONS (9)
  - Localised oedema [Not Recovered/Not Resolved]
  - Weight increased [Unknown]
  - Muscle spasms [Unknown]
  - White blood cell count increased [Unknown]
  - Blood pressure abnormal [Unknown]
  - Oedema peripheral [Not Recovered/Not Resolved]
  - Generalised oedema [Unknown]
  - Arthralgia [Unknown]
  - COVID-19 [Unknown]

NARRATIVE: CASE EVENT DATE: 20230901
